FAERS Safety Report 19407941 (Version 11)
Quarter: 2022Q2

REPORT INFORMATION
  Report Type: Report from Study
  Country: US (occurrence: US)
  Receive Date: 20210612
  Receipt Date: 20220604
  Transmission Date: 20220720
  Serious: Yes (Life-Threatening, Hospitalization, Other)
  Sender: FDA-Public Use
  Company Number: US-NOVARTISPH-NVSC2021US132709

PATIENT
  Sex: Male
  Weight: 102.5 kg

DRUGS (18)
  1. ENTRESTO [Suspect]
     Active Substance: SACUBITRIL\VALSARTAN
     Indication: Product used for unknown indication
     Dosage: 1 DOSAGE FORM (24/26 MG); DISCONTINUED
     Route: 048
  2. ENTRESTO [Suspect]
     Active Substance: SACUBITRIL\VALSARTAN
     Dosage: 1 DOSAGE FORM (49/51 MG)
     Route: 065
  3. ENTRESTO [Suspect]
     Active Substance: SACUBITRIL\VALSARTAN
     Dosage: 1 DOSAGE FORM, (49/51 MG)
     Route: 065
  4. ENTRESTO [Suspect]
     Active Substance: SACUBITRIL\VALSARTAN
     Dosage: 0.5 DOSAGE FORM, BID (HALF A PILL)
     Route: 065
  5. AMIODARONE [Suspect]
     Active Substance: AMIODARONE
     Indication: Product used for unknown indication
     Dosage: 0.5 DOSAGE FORM, QD (QUANTITY: 20)
     Route: 048
  6. METFORMIN [Suspect]
     Active Substance: METFORMIN HYDROCHLORIDE
     Indication: Product used for unknown indication
     Dosage: 1 DOSAGE FORM, BID
     Route: 048
  7. JARDIANCE [Suspect]
     Active Substance: EMPAGLIFLOZIN
     Indication: Product used for unknown indication
     Dosage: UNK
     Route: 065
  8. XARELTO [Concomitant]
     Active Substance: RIVAROXABAN
     Indication: Product used for unknown indication
     Dosage: 1 DOSAGE FORM, QD (QUANTITY: 90)
     Route: 048
  9. METOPROLOL SUCCINATE [Concomitant]
     Active Substance: METOPROLOL SUCCINATE
     Indication: Product used for unknown indication
     Dosage: 1 DOSAGE FORM, QD (IN THE MORNING); 50 MG EXTENDED RELEASE
     Route: 048
  10. METOPROLOL SUCCINATE [Concomitant]
     Active Substance: METOPROLOL SUCCINATE
     Dosage: 1 DOSAGE FORM, QD (IN THE EVENING); 25 MG EXTENDED RELEASE; QUANTITY 90
     Route: 048
  11. TRULICITY [Concomitant]
     Active Substance: DULAGLUTIDE
     Indication: Product used for unknown indication
     Dosage: UNK UNK, QW
     Route: 058
  12. ASPIRIN [Concomitant]
     Active Substance: ASPIRIN
     Indication: Product used for unknown indication
     Dosage: 1 DOSAGE FORM, QD
     Route: 048
  13. OTEZLA [Concomitant]
     Active Substance: APREMILAST
     Indication: Product used for unknown indication
     Dosage: 1 DOSAGE FORM, BID
     Route: 048
  14. GUAIFENESIN [Concomitant]
     Active Substance: GUAIFENESIN
     Indication: Product used for unknown indication
     Dosage: 1 DOSAGE FORM, BID
     Route: 048
  15. MAGNESIUM OXIDE [Concomitant]
     Active Substance: MAGNESIUM OXIDE
     Indication: Product used for unknown indication
     Dosage: 1 DOSAGE FORM, QD (QUANTITY 90)
     Route: 048
  16. RANOLAZINE [Concomitant]
     Active Substance: RANOLAZINE
     Indication: Product used for unknown indication
     Dosage: 1 DOSAGE FORM, BID (EXTENDED RELEASE); QUANTITY 180
     Route: 048
  17. FENOFIBRIC ACID [Concomitant]
     Active Substance: FENOFIBRIC ACID
     Indication: Product used for unknown indication
     Dosage: 1 DOSAGE FORM, QD; DELAYED RELEASE
     Route: 048
  18. VITAMIN D3 [Concomitant]
     Active Substance: CHOLECALCIFEROL
     Indication: Product used for unknown indication
     Dosage: 1 DOSAGE FORM, QD
     Route: 048

REACTIONS (31)
  - Near death experience [Unknown]
  - Atrial flutter [Unknown]
  - Acute cardiac event [Unknown]
  - Cardiac failure [Unknown]
  - Ejection fraction decreased [Recovering/Resolving]
  - Atrial fibrillation [Unknown]
  - Ventricular tachycardia [Unknown]
  - Syncope [Unknown]
  - Anxiety [Unknown]
  - Weight increased [Unknown]
  - Fluid retention [Unknown]
  - Hyperlipidaemia [Unknown]
  - Aortic aneurysm [Unknown]
  - Metabolic syndrome [Unknown]
  - Obesity [Unknown]
  - Palpitations [Unknown]
  - Dyspnoea [Recovered/Resolved]
  - Eating disorder [Unknown]
  - Stress cardiomyopathy [Unknown]
  - Atrioventricular block first degree [Unknown]
  - Deposit eye [Unknown]
  - Dyspnoea exertional [Recovered/Resolved]
  - Waist circumference increased [Unknown]
  - Blood glucose increased [Recovering/Resolving]
  - Fall [Unknown]
  - Diarrhoea [Recovered/Resolved]
  - Fatigue [Unknown]
  - Dizziness [Unknown]
  - Hypertension [Unknown]
  - Hypotension [Unknown]
  - Wrong technique in product usage process [Unknown]
